FAERS Safety Report 13568907 (Version 2)
Quarter: 2017Q2

REPORT INFORMATION
  Report Type: Spontaneous
  Country: CA (occurrence: CA)
  Receive Date: 20170522
  Receipt Date: 20170530
  Transmission Date: 20170830
  Serious: Yes (Life-Threatening, Other)
  Sender: FDA-Public Use
  Company Number: PHHY2017CA072164

PATIENT
  Sex: Male
  Weight: 109 kg

DRUGS (7)
  1. CORTEF [Concomitant]
     Active Substance: HYDROCORTISONE
     Indication: PRODUCT USED FOR UNKNOWN INDICATION
     Dosage: 10 MG, BID
     Route: 065
  2. SOMATOSTATIN [Suspect]
     Active Substance: SOMATOSTATIN
     Indication: ACROMEGALY
     Dosage: UNK
     Route: 065
  3. ANDROGEL [Concomitant]
     Active Substance: TESTOSTERONE
     Indication: PRODUCT USED FOR UNKNOWN INDICATION
     Dosage: 7.5 G, QD
     Route: 065
  4. MORPHINE [Concomitant]
     Active Substance: MORPHINE
     Indication: PRODUCT USED FOR UNKNOWN INDICATION
     Dosage: UNK
     Route: 065
  5. CABERGOLIN [Suspect]
     Active Substance: CABERGOLINE
     Indication: ACROMEGALY
     Route: 065
  6. SANDOSTATIN [Suspect]
     Active Substance: OCTREOTIDE ACETATE
     Indication: ACROMEGALY
     Dosage: UNK
     Route: 065
     Dates: end: 201507
  7. SYNTHROID [Concomitant]
     Active Substance: LEVOTHYROXINE SODIUM
     Indication: PRODUCT USED FOR UNKNOWN INDICATION
     Dosage: 0.75 MG, QD
     Route: 065

REACTIONS (12)
  - Hernia [Unknown]
  - Stress [Unknown]
  - Cholelithiasis [Unknown]
  - Hypersensitivity [Unknown]
  - Feeling abnormal [Unknown]
  - Fear of injection [Unknown]
  - Gallbladder disorder [Unknown]
  - Anxiety [Unknown]
  - Therapeutic response decreased [Unknown]
  - Kidney infection [Unknown]
  - Drug intolerance [Unknown]
  - Hepatic infection [Unknown]

NARRATIVE: CASE EVENT DATE: 2016
